FAERS Safety Report 5951310-8 (Version None)
Quarter: 2008Q4

REPORT INFORMATION
  Report Type: 
  Country: None (occurrence: None)
  Receive Date: 20081113
  Receipt Date: 20081105
  Transmission Date: 20090506
  Serious: Yes (Hospitalization, Disabling)
  Sender: FDA-Public Use
  Company Number: US-ROCHE-387369

PATIENT
  Sex: Male
  Weight: 77.1 kg

DRUGS (3)
  1. ACCUTANE [Suspect]
     Indication: ACNE
     Dosage: MAXIMUM DOSE AVERAGED 70MG PER DAY
     Route: 048
     Dates: start: 19980401
  2. ACCUTANE [Suspect]
     Route: 048
     Dates: start: 19980520, end: 19980728
  3. ACCUTANE [Suspect]
     Route: 048
     Dates: start: 19980811, end: 19980910

REACTIONS (7)
  - COLITIS [None]
  - COLITIS ULCERATIVE [None]
  - GASTROINTESTINAL DISORDER [None]
  - INFLAMMATORY BOWEL DISEASE [None]
  - INTESTINAL HAEMORRHAGE [None]
  - POUCHITIS [None]
  - RECTAL HAEMORRHAGE [None]
